FAERS Safety Report 25284320 (Version 1)
Quarter: 2025Q2

REPORT INFORMATION
  Report Type: Spontaneous
  Country: US (occurrence: None)
  Receive Date: 20250508
  Receipt Date: 20250508
  Transmission Date: 20250716
  Serious: Yes (Hospitalization)
  Sender: FDA-CTU
  Company Number: None

PATIENT
  Age: 74 Year
  Sex: Female
  Weight: 79.65 kg

DRUGS (2)
  1. VYVGART HYTRULO [Suspect]
     Active Substance: EFGARTIGIMOD ALFA\HYALURONIDASE-QVFC
     Route: 058
     Dates: start: 20250319, end: 20250403
  2. VYVGART HYTRULO [Concomitant]
     Active Substance: EFGARTIGIMOD ALFA\HYALURONIDASE-QVFC
     Dates: start: 20250319, end: 20250403

REACTIONS (2)
  - Pneumonia staphylococcal [None]
  - Cardiac arrest [None]

NARRATIVE: CASE EVENT DATE: 20250410
